FAERS Safety Report 5497937-1 (Version None)
Quarter: 2007Q4

REPORT INFORMATION
  Report Type: 
  Country: None (occurrence: None)
  Receive Date: 20071025
  Receipt Date: 20071017
  Transmission Date: 20080405
  Serious: Yes (Hospitalization, Other)
  Sender: FDA-Public Use
  Company Number: BR-PFIZER INC-2007088549

PATIENT
  Sex: Male

DRUGS (5)
  1. VIAGRA [Suspect]
     Indication: ERECTILE DYSFUNCTION
     Route: 048
  2. GLYBURIDE [Concomitant]
     Route: 048
  3. METFORMIN [Concomitant]
     Route: 048
  4. AAS [Concomitant]
     Route: 048
  5. ATENOLOL [Concomitant]
     Route: 048
     Dates: start: 20060101

REACTIONS (2)
  - HYPERTENSION [None]
  - VASCULAR GRAFT [None]
